FAERS Safety Report 10149634 (Version 2)
Quarter: 2014Q2

REPORT INFORMATION
  Report Type: Spontaneous
  Country: GB (occurrence: GB)
  Receive Date: 20140502
  Receipt Date: 20140502
  Transmission Date: 20141212
  Serious: Yes (Death)
  Sender: FDA-Public Use
  Company Number: PHBS1999GB01346

PATIENT
  Age: 60 Year
  Sex: Male

DRUGS (4)
  1. COMTESS [Suspect]
     Indication: PARKINSON^S DISEASE
     Dosage: 6 DF, (1200 MG )DAILY
     Route: 048
     Dates: start: 19990215
  2. SINEMET [Concomitant]
     Indication: PARKINSON^S DISEASE
     Dosage: UNK UKN, DAILY
     Route: 048
     Dates: start: 1994
  3. PERGOLIDE [Concomitant]
     Indication: PARKINSON^S DISEASE
     Dosage: 750 MG, DAILY
     Route: 048
     Dates: start: 199809
  4. MADOPAR [Concomitant]
     Indication: PARKINSON^S DISEASE
     Dosage: 125 MG, DAILY
     Route: 048
     Dates: start: 199901

REACTIONS (2)
  - Completed suicide [Fatal]
  - Death [Fatal]
